FAERS Safety Report 16471386 (Version 3)
Quarter: 2021Q2

REPORT INFORMATION
  Report Type: Report from Study
  Country: BR (occurrence: BR)
  Receive Date: 20190624
  Receipt Date: 20210401
  Transmission Date: 20210716
  Serious: Yes (Other)
  Sender: FDA-Public Use
  Company Number: BR-SHIRE-BR201919882

PATIENT
  Sex: Male
  Weight: 32 kg

DRUGS (5)
  1. IMUNOGLOBULIN [IMMUNOGLOBULIN HUMAN NORMAL] [Concomitant]
     Indication: PRODUCT USED FOR UNKNOWN INDICATION
  2. ENDOBULIN [Concomitant]
     Active Substance: HUMAN IMMUNOGLOBULIN G
     Indication: PRODUCT USED FOR UNKNOWN INDICATION
  3. HUMAN IMMUNOGLOBULIN; HYALURONIDASE [Suspect]
     Active Substance: HUMAN IMMUNOGLOBULIN G\HYALURONIDASE RECOMBINANT HUMAN
     Indication: PRIMARY IMMUNODEFICIENCY SYNDROME
     Dosage: 150 MILLILITER, EVERY 28 DAYS
     Route: 058
     Dates: start: 20180706
  4. HUMAN IMMUNOGLOBULIN; HYALURONIDASE [Suspect]
     Active Substance: HUMAN IMMUNOGLOBULIN G\HYALURONIDASE RECOMBINANT HUMAN
     Indication: HYPERGAMMAGLOBULINAEMIA
     Dosage: 15 GRAM, Q4WEEKS
     Route: 058
     Dates: start: 20181011
  5. FLEBOGAMMA [Concomitant]
     Active Substance: HUMAN IMMUNOGLOBULIN G
     Indication: PRODUCT USED FOR UNKNOWN INDICATION

REACTIONS (9)
  - Wrong technique in product usage process [Unknown]
  - Injection site haematoma [Unknown]
  - Injection site discomfort [Unknown]
  - Subcutaneous drug absorption impaired [Unknown]
  - Moaning [Unknown]
  - Burning sensation [Unknown]
  - Crying [Unknown]
  - Product administration error [Unknown]
  - Intentional product use issue [Unknown]
